FAERS Safety Report 4656667-6 (Version None)
Quarter: 2005Q2

REPORT INFORMATION
  Report Type: 
  Country: None (occurrence: None)
  Receive Date: 20050331
  Receipt Date: 20050112
  Transmission Date: 20051028
  Serious: Yes (Hospitalization)
  Sender: FDA-Public Use
  Company Number: PRA105829

PATIENT
  Age: 49 Year
  Sex: Female

DRUGS (6)
  1. NEULASTA [Suspect]
     Indication: CHEMOTHERAPY
     Dosage: 6 MG, 1 IN 2 WEEKS, SC
     Route: 058
     Dates: start: 20041006, end: 20041229
  2. PACLITAXEL [Suspect]
     Dosage: 175 MG/M2, 1 IN 2 WEEKS, IV
     Route: 042
     Dates: start: 20041130
  3. DOXORUBICIN HYDROCHLORIDE [Concomitant]
  4. CYCLOPHOSPHAMIDE [Concomitant]
  5. PROCRIT [Concomitant]
  6. OXYCODONE HCL [Concomitant]

REACTIONS (4)
  - ARTHRALGIA [None]
  - BACK PAIN [None]
  - CHEST WALL PAIN [None]
  - PAIN IN EXTREMITY [None]
